FAERS Safety Report 12799360 (Version 8)
Quarter: 2017Q1

REPORT INFORMATION
  Report Type: Report from Study
  Country: BR (occurrence: BR)
  Receive Date: 20160930
  Receipt Date: 20170324
  Transmission Date: 20170428
  Serious: Yes (Other)
  Sender: FDA-Public Use
  Company Number: BR-JNJFOC-20160929781

PATIENT
  Age: 32 Year
  Sex: Female
  Weight: 78 kg

DRUGS (4)
  1. PRELONE [Concomitant]
     Active Substance: PREDNISOLONE
     Route: 065
  2. TECNOMET [Concomitant]
     Active Substance: METHOTREXATE
     Route: 065
  3. PREDNISOLONE SODIUM PHOSPHATE. [Concomitant]
     Active Substance: PREDNISOLONE SODIUM PHOSPHATE
     Route: 065
  4. SIMPONI [Suspect]
     Active Substance: GOLIMUMAB
     Indication: RHEUMATOID ARTHRITIS
     Route: 058
     Dates: start: 20160211

REACTIONS (4)
  - Joint swelling [Unknown]
  - Pharyngitis [Unknown]
  - Arthralgia [Not Recovered/Not Resolved]
  - Drug ineffective [Unknown]

NARRATIVE: CASE EVENT DATE: 201608
